FAERS Safety Report 8217828-2 (Version None)
Quarter: 2012Q1

REPORT INFORMATION
  Report Type: 
  Country: None (occurrence: None)
  Receive Date: 20120315
  Receipt Date: 20120302
  Transmission Date: 20120608
  Serious: Yes (Hospitalization)
  Sender: FDA-Public Use
  Company Number: 2012-00376

PATIENT
  Age: 65 Year
  Sex: Male

DRUGS (8)
  1. GLIMEPIRIDE (UNKNWON) [Concomitant]
  2. LANSOPRAZOLE (UNKNWON) [Concomitant]
  3. PRAVASTATIN (UNKNWON) [Concomitant]
  4. PAROXETINE (UNKNWON) [Concomitant]
  5. LISINOPRIL [Suspect]
     Indication: MYOCARDIAL INFARCTION
     Dosage: 20 MG (20 MG, 1 IN 1 D), ORAL
     Route: 048
     Dates: end: 20120222
  6. METFORMIN (UNKNWON) [Concomitant]
  7. ATENOLOL ((UNKNWON) [Concomitant]
  8. ASPIRIN (UNKNWON) [Concomitant]

REACTIONS (3)
  - NEUTROPHILIA [None]
  - VOMITING [None]
  - ANAPHYLACTIC REACTION [None]
